FAERS Safety Report 6930084-8 (Version None)
Quarter: 2010Q3

REPORT INFORMATION
  Report Type: 
  Country: None (occurrence: None)
  Receive Date: 20100818
  Receipt Date: 20100810
  Transmission Date: 20110219
  Serious: Yes (Death, Hospitalization)
  Sender: FDA-Public Use
  Company Number: FR-BAYER-201035542GPV

PATIENT
  Age: 76 Year
  Sex: Female

DRUGS (5)
  1. CIFLOX [Suspect]
     Indication: LUNG INFECTION
     Dosage: TOTAL DAILY DOSE: 800 MG
     Dates: start: 20100401, end: 20100101
  2. AUGMENTIN '125' [Suspect]
     Indication: LUNG INFECTION
     Dosage: TOTAL DAILY DOSE: 3000 MG
     Dates: start: 20100401, end: 20100101
  3. PIPERACILLIN AND TAZOBACTAM [Suspect]
     Indication: LUNG INFECTION
     Dosage: TOTAL DAILY DOSE: 12 G
     Dates: start: 20100401, end: 20100101
  4. DOBUTAMINE HCL [Concomitant]
  5. NORADRENALINE [Concomitant]

REACTIONS (3)
  - CLOSTRIDIUM TEST POSITIVE [None]
  - DEATH [None]
  - PSEUDOMEMBRANOUS COLITIS [None]
